FAERS Safety Report 13063509 (Version 1)
Quarter: 2016Q4

REPORT INFORMATION
  Report Type: Other
  Country: US (occurrence: US)
  Receive Date: 20161227
  Receipt Date: 20161227
  Transmission Date: 20170207
  Serious: Yes (Hospitalization)
  Sender: FDA-Public Use
  Company Number: US-NOVEL LABORATORIES, INC-2016-05694

PATIENT
  Age: 37 Year
  Sex: Male

DRUGS (2)
  1. MORPHINE [Suspect]
     Active Substance: MORPHINE
     Indication: BACK PAIN
     Route: 065
  2. MORPHINE [Suspect]
     Active Substance: MORPHINE
     Dosage: CRUSHED 15 MG MORPHINE SULFATE IMMEDIATE RELEASE TABS, DISSOLVED THEM IN TAP WATER AND INJECTED THEM
     Route: 042

REACTIONS (3)
  - Incorrect route of drug administration [Unknown]
  - Intentional product misuse [Unknown]
  - Pericarditis [Recovered/Resolved]
